FAERS Safety Report 24363499 (Version 1)
Quarter: 2024Q3

REPORT INFORMATION
  Report Type: Spontaneous
  Country: US (occurrence: None)
  Receive Date: 20240925
  Receipt Date: 20240925
  Transmission Date: 20241016
  Serious: Yes (Disabling, Other)
  Sender: Public
  Company Number: None

PATIENT
  Age: 71 Year
  Sex: Female
  Weight: 83.25 kg

DRUGS (2)
  1. TIMOLOL MALEATE [Suspect]
     Active Substance: TIMOLOL MALEATE
     Indication: Intraocular pressure increased
     Dosage: 11 DROP TWICE A DAY OPHTHALMIC
     Route: 047
     Dates: start: 20180120, end: 20240331
  2. METOPROLOL [Concomitant]
     Active Substance: METOPROLOL

REACTIONS (13)
  - Chest pain [None]
  - Dyspnoea [None]
  - Cardiac disorder [None]
  - Arthropathy [None]
  - Asthenia [None]
  - Thinking abnormal [None]
  - Somnolence [None]
  - Heart rate decreased [None]
  - Muscular weakness [None]
  - Fatigue [None]
  - Diarrhoea [None]
  - Asthenia [None]
  - Loss of personal independence in daily activities [None]

NARRATIVE: CASE EVENT DATE: 20240325
